FAERS Safety Report 20491967 (Version 1)
Quarter: 2022Q1

REPORT INFORMATION
  Report Type: Spontaneous
  Country: US (occurrence: US)
  Receive Date: 20220218
  Receipt Date: 20220218
  Transmission Date: 20220423
  Serious: No
  Sender: FDA-Public Use
  Company Number: US-PFIZER INC-2021561515

PATIENT
  Age: 49 Year
  Sex: Female

DRUGS (3)
  1. XANAX [Suspect]
     Active Substance: ALPRAZOLAM
     Dosage: IN THE EVENING
     Dates: start: 20210510
  2. XANAX [Suspect]
     Active Substance: ALPRAZOLAM
     Dosage: 0.25 MG, 1X/DAY
     Dates: start: 20210512
  3. XANAX [Suspect]
     Active Substance: ALPRAZOLAM
     Dosage: 0.5 DF, 1X/DAY
     Dates: start: 20210513

REACTIONS (1)
  - Sensory loss [Unknown]
